FAERS Safety Report 25956072 (Version 2)
Quarter: 2025Q4

REPORT INFORMATION
  Report Type: Report from Study
  Country: JP (occurrence: JP)
  Receive Date: 20251024
  Receipt Date: 20251119
  Transmission Date: 20260117
  Serious: Yes (Other)
  Sender: ROCHE
  Company Number: JP-ROCHE-10000415430

PATIENT

DRUGS (1)
  1. RITUXIMAB [Suspect]
     Active Substance: RITUXIMAB
     Indication: Systemic sclerosis pulmonary
     Route: 065

REACTIONS (6)
  - Infusion related reaction [Unknown]
  - COVID-19 [Unknown]
  - Cellulitis [Unknown]
  - Lung abscess [Unknown]
  - Herpes zoster [Unknown]
  - Thrombocytopenia [Unknown]
